FAERS Safety Report 9350030 (Version 1)
Quarter: 2013Q2

REPORT INFORMATION
  Report Type: Spontaneous
  Country: JP (occurrence: JP)
  Receive Date: 20130615
  Receipt Date: 20130615
  Transmission Date: 20140414
  Serious: Yes (Life-Threatening)
  Sender: FDA-Public Use
  Company Number: JP-GENZYME-CERZ-1003049

PATIENT
  Age: 15 Year
  Sex: Female
  Weight: 40 kg

DRUGS (2)
  1. CEREZYME [Suspect]
     Indication: GAUCHER^S DISEASE
     Dosage: 60 U/KG, Q2W
     Route: 042
     Dates: start: 19990127
  2. ALFACALCIDOL [Concomitant]
     Indication: PRODUCT USED FOR UNKNOWN INDICATION
     Dosage: UNK
     Route: 065

REACTIONS (2)
  - Tibia fracture [Not Recovered/Not Resolved]
  - Disease progression [Not Recovered/Not Resolved]
